FAERS Safety Report 24654426 (Version 2)
Quarter: 2025Q1

REPORT INFORMATION
  Report Type: Report from Study
  Country: JP (occurrence: JP)
  Receive Date: 20241122
  Receipt Date: 20250106
  Transmission Date: 20250409
  Serious: Yes (Hospitalization, Other)
  Sender: EISAI
  Company Number: JP-Eisai-EC-2024-178462

PATIENT
  Age: 65 Year
  Sex: Male

DRUGS (16)
  1. LENVATINIB [Suspect]
     Active Substance: LENVATINIB
     Indication: Thymic carcinoma
     Route: 048
     Dates: start: 20241023
  2. CARBOPLATIN [Suspect]
     Active Substance: CARBOPLATIN
     Indication: Thymic carcinoma
     Dates: start: 20241023
  3. PACLITAXEL [Suspect]
     Active Substance: PACLITAXEL
     Indication: Thymic carcinoma
     Dates: start: 20241023
  4. PEMBROLIZUMAB [Suspect]
     Active Substance: PEMBROLIZUMAB
     Indication: Thymic carcinoma
     Dates: start: 20241023
  5. RABEPRAZOLE SODIUM [Suspect]
     Active Substance: RABEPRAZOLE SODIUM
     Indication: Abdominal pain upper
     Route: 048
     Dates: start: 20241012, end: 20241121
  6. LOXOPROFEN SODIUM DIHYDRATE [Concomitant]
     Active Substance: LOXOPROFEN SODIUM DIHYDRATE
     Dates: start: 2024
  7. AMLODIPINE BESYLATE [Concomitant]
     Active Substance: AMLODIPINE BESYLATE
     Dates: start: 20241027, end: 20241101
  8. DIFLUPREDNATE [Concomitant]
     Active Substance: DIFLUPREDNATE
     Dates: start: 20241101, end: 20241105
  9. METOCLOPRAMIDE [Concomitant]
     Active Substance: METOCLOPRAMIDE
     Dates: start: 20241024
  10. POLYETHYLENE GLYCOL 4000 [Concomitant]
     Active Substance: POLYETHYLENE GLYCOL 4000
     Dates: start: 20241026
  11. BISACODYL [Concomitant]
     Active Substance: BISACODYL
     Dates: start: 20241026
  12. LEMBOREXANT [Concomitant]
     Active Substance: LEMBOREXANT
     Dates: start: 20241026
  13. APIXABAN [Concomitant]
     Active Substance: APIXABAN
     Dates: start: 20241022
  14. ACETAMINOPHEN [Concomitant]
     Active Substance: ACETAMINOPHEN
     Dates: start: 2024, end: 20241114
  15. NIFEDIPINE [Concomitant]
     Active Substance: NIFEDIPINE
     Dates: start: 20241027
  16. VALSARTAN [Concomitant]
     Active Substance: VALSARTAN
     Dates: start: 20241031, end: 20241101

REACTIONS (2)
  - Erythema multiforme [Recovered/Resolved]
  - Hepatic enzyme abnormal [Recovered/Resolved]

NARRATIVE: CASE EVENT DATE: 20241028
